FAERS Safety Report 18472720 (Version 1)
Quarter: 2020Q4

REPORT INFORMATION
  Report Type: Spontaneous
  Country: US (occurrence: US)
  Receive Date: 20201105
  Receipt Date: 20201105
  Transmission Date: 20210114
  Serious: No
  Sender: FDA-Public Use
  Company Number: None

PATIENT
  Age: 85 Year
  Sex: Female

DRUGS (9)
  1. REMDESIVIR. [Suspect]
     Active Substance: REMDESIVIR
     Indication: COVID-19
     Dates: start: 20201012, end: 20201012
  2. ASCORBIC ACID. [Concomitant]
     Active Substance: ASCORBIC ACID
     Dates: start: 20201013
  3. NS [Concomitant]
     Active Substance: SODIUM CHLORIDE
     Dates: start: 20201012, end: 20201014
  4. PYRIDOXINE [Concomitant]
     Active Substance: PYRIDOXINE
     Dates: start: 20201013
  5. BUMETANIDE. [Concomitant]
     Active Substance: BUMETANIDE
     Dosage: ?          OTHER ROUTE:IV PUSH?
     Dates: start: 20201014
  6. CALCITRATE-D [Concomitant]
     Dates: start: 20201013
  7. INSULIN LOW CORRECTIONAL SCALE [Concomitant]
     Dates: start: 20201013
  8. MULTIVITAMIN [Concomitant]
     Active Substance: VITAMINS
     Dates: start: 20201013
  9. LISINOPRIL. [Concomitant]
     Active Substance: LISINOPRIL
     Dates: start: 20201013

REACTIONS (4)
  - Bradycardia [None]
  - Confusional state [None]
  - Dyspnoea [None]
  - Fatigue [None]
